FAERS Safety Report 6137540-3 (Version None)
Quarter: 2009Q1

REPORT INFORMATION
  Report Type: 
  Country: None (occurrence: None)
  Receive Date: 20090327
  Receipt Date: 20090316
  Transmission Date: 20090719
  Serious: Yes (Hospitalization, Other)
  Sender: FDA-Public Use
  Company Number: 232408K09USA

PATIENT
  Age: 52 Year
  Sex: Female

DRUGS (3)
  1. REBIF [Suspect]
     Indication: MULTIPLE SCLEROSIS
     Dosage: 44 MCG, 3 IN 1 WEEKS, SUBCUTANEOUS
     Route: 058
     Dates: start: 20081004, end: 20081201
  2. ZANAFLEX [Concomitant]
  3. DURAGESIC (FENTANYL /00174601/) [Concomitant]

REACTIONS (2)
  - NEPHROLITHIASIS [None]
  - STENT MALAPPOSITION [None]
